FAERS Safety Report 20975648 (Version 1)
Quarter: 2022Q2

REPORT INFORMATION
  Report Type: Report from Study
  Country: CA (occurrence: CA)
  Receive Date: 20220617
  Receipt Date: 20220617
  Transmission Date: 20220721
  Serious: Yes (Other)
  Sender: FDA-Public Use
  Company Number: CA-NOVARTISPH-NVSC2021CA051137

PATIENT
  Age: 68 Year
  Sex: Female

DRUGS (6)
  1. ERELZI [Suspect]
     Active Substance: ETANERCEPT-SZZS
     Indication: Psoriatic arthropathy
     Dosage: 50 MG, QW
     Route: 058
     Dates: start: 20201127
  2. ERELZI [Suspect]
     Active Substance: ETANERCEPT-SZZS
     Dosage: UNK
     Route: 058
     Dates: start: 202012, end: 202103
  3. ETANERCEPT [Suspect]
     Active Substance: ETANERCEPT
     Indication: Product used for unknown indication
     Dosage: UNK
     Route: 058
     Dates: start: 202103, end: 202106
  4. ENBREL [Concomitant]
     Active Substance: ETANERCEPT
     Indication: Product used for unknown indication
     Dosage: UNK
     Route: 058
     Dates: start: 2015, end: 2020
  5. HUMIRA [Concomitant]
     Active Substance: ADALIMUMAB
     Indication: Product used for unknown indication
     Dosage: UNK
     Route: 058
  6. SIMPONI [Concomitant]
     Active Substance: GOLIMUMAB
     Indication: Product used for unknown indication
     Dosage: UNK
     Route: 058

REACTIONS (8)
  - Atrial fibrillation [Unknown]
  - Cardiac disorder [Unknown]
  - Musculoskeletal stiffness [Unknown]
  - Pain [Unknown]
  - Spinal disorder [Unknown]
  - Pustular psoriasis [Not Recovered/Not Resolved]
  - Psoriasis [Unknown]
  - Drug ineffective [Unknown]

NARRATIVE: CASE EVENT DATE: 20210301
